FAERS Safety Report 4766880-5 (Version None)
Quarter: 2005Q3

REPORT INFORMATION
  Report Type: 
  Country: None (occurrence: None)
  Receive Date: 20050909
  Receipt Date: 20050826
  Transmission Date: 20060218
  Serious: Yes (Other)
  Sender: FDA-Public Use
  Company Number: 2005121689

PATIENT
  Age: 57 Year
  Sex: 0

DRUGS (4)
  1. VIAGRA [Suspect]
     Indication: ERECTILE DYSFUNCTION
     Dosage: ORAL
     Route: 048
     Dates: start: 20050418, end: 20050812
  2. CARDURA [Suspect]
     Indication: ILL-DEFINED DISORDER
     Dosage: (4 MG), ORAL
     Route: 048
     Dates: start: 20050707
  3. INSULIN (NISULIN) [Concomitant]
  4. IMIPRAMINE [Concomitant]

REACTIONS (2)
  - DRUG INTERACTION [None]
  - EYE HAEMORRHAGE [None]
